FAERS Safety Report 17810176 (Version 1)
Quarter: 2020Q2

REPORT INFORMATION
  Report Type: Spontaneous
  Country: US (occurrence: US)
  Receive Date: 20200521
  Receipt Date: 20200521
  Transmission Date: 20200714
  Serious: No
  Sender: FDA-Public Use
  Company Number: US-009507513-2005USA006683

PATIENT
  Age: 72 Year
  Sex: Female

DRUGS (3)
  1. IPRATROPIUM BROMIDE. [Concomitant]
     Active Substance: IPRATROPIUM BROMIDE
     Indication: ACUTE RESPIRATORY FAILURE
  2. PROVENTIL [Suspect]
     Active Substance: ALBUTEROL
     Indication: ACUTE RESPIRATORY FAILURE
     Dosage: UNK
  3. METHYLPREDNISOLONE. [Concomitant]
     Active Substance: METHYLPREDNISOLONE
     Indication: ACUTE RESPIRATORY FAILURE
     Route: 042

REACTIONS (1)
  - Product use in unapproved indication [Unknown]
